FAERS Safety Report 19013760 (Version 1)
Quarter: 2021Q1

REPORT INFORMATION
  Report Type: Spontaneous
  Country: CN (occurrence: CN)
  Receive Date: 20210315
  Receipt Date: 20210315
  Transmission Date: 20210420
  Serious: Yes (Other)
  Sender: FDA-Public Use
  Company Number: CN-BAXTER-2021BAX004765

PATIENT
  Age: 64 Year
  Sex: Male
  Weight: 73 kg

DRUGS (4)
  1. ENDOXAN [Suspect]
     Active Substance: CYCLOPHOSPHAMIDE
     Indication: ANGIOIMMUNOBLASTIC T-CELL LYMPHOMA
     Dosage: DAY1, ENDOXAN 800 MG + NS 40 ML, FIRST CYCLE OF CHEMOTHERAPY
     Route: 042
     Dates: start: 20210211, end: 20210211
  2. ETOPOSIDE. [Suspect]
     Active Substance: ETOPOSIDE
     Indication: ANGIOIMMUNOBLASTIC T-CELL LYMPHOMA
     Dosage: DAYS 1?3, ETOPOSIDE (VP?16) 100 MG + NS 500ML, FIRST CYCLE OF CHEMOTHERAPY
     Route: 041
     Dates: start: 20210211, end: 20210213
  3. 0.9% SODIUM CHLORIDE INJECTION [Suspect]
     Active Substance: SODIUM CHLORIDE
     Dosage: DAYS 1?3, ETOPOSIDE (VP?16) 100 MG + NS 500ML, FIRST CYCLE OF CHEMOTHERAPY
     Route: 041
     Dates: start: 20210211, end: 20210213
  4. 0.9% SODIUM CHLORIDE INJECTION [Suspect]
     Active Substance: SODIUM CHLORIDE
     Indication: MEDICATION DILUTION
     Dosage: DAY1, ENDOXAN 800 MG + NS 40 ML, FIRST CYCLE OF CHEMOTHERAPY
     Route: 042
     Dates: start: 20210211, end: 20210211

REACTIONS (2)
  - White blood cell count decreased [Recovered/Resolved]
  - Agranulocytosis [Recovered/Resolved]

NARRATIVE: CASE EVENT DATE: 20210218
